FAERS Safety Report 6501331-1 (Version None)
Quarter: 2009Q4

REPORT INFORMATION
  Report Type: 
  Country: None (occurrence: None)
  Receive Date: 20091215
  Receipt Date: 20091215
  Transmission Date: 20100525
  Serious: Yes (Other)
  Sender: FDA-Public Use
  Company Number: None

PATIENT
  Sex: Female
  Weight: 66.4 kg

DRUGS (20)
  1. FERAHEME [Suspect]
     Indication: ANAEMIA
     Dosage: 510MG IV ONE TIME
     Route: 042
     Dates: start: 20091106
  2. FERAHEME [Suspect]
     Indication: RENAL FAILURE CHRONIC
     Dosage: 510MG IV ONE TIME
     Route: 042
     Dates: start: 20091106
  3. VENOFER [Concomitant]
  4. ZEMPLAR [Concomitant]
  5. AFLURIA [Concomitant]
  6. EPOGEN [Concomitant]
  7. HEPARIN SODIUM [Concomitant]
  8. TUBERSOL [Concomitant]
  9. TYLENOL (CAPLET) [Concomitant]
  10. SODIUM CHLORIDE VIAL INJECTION [Concomitant]
  11. SODIUM CHLORIDE INTRAVENOUS SOLUTION [Concomitant]
  12. BENADRYL [Concomitant]
  13. ZITHROMAX [Concomitant]
  14. HUMALOG MIX [Concomitant]
  15. RENAGEL [Concomitant]
  16. COREG [Concomitant]
  17. PLAVIX [Concomitant]
  18. NORVASC [Concomitant]
  19. DAILY MULTIVITAMIN [Concomitant]
  20. ASPIRIN [Concomitant]

REACTIONS (3)
  - BLOOD GLUCOSE INCREASED [None]
  - INFUSION RELATED REACTION [None]
  - UNRESPONSIVE TO STIMULI [None]
